FAERS Safety Report 15886549 (Version 24)
Quarter: 2020Q3

REPORT INFORMATION
  Report Type: Report from Study
  Country: US (occurrence: US)
  Receive Date: 20190129
  Receipt Date: 20200714
  Transmission Date: 20201102
  Serious: Yes (Hospitalization, Other)
  Sender: FDA-Public Use
  Company Number: US-ACTELION-A-NJ2018-179449

PATIENT
  Age: 75 Year
  Sex: Male
  Weight: 88.89 kg

DRUGS (17)
  1. VELETRI [Suspect]
     Active Substance: EPOPROSTENOL
     Dosage: 12.99 NG/KG, PER MIN
     Route: 042
  2. VELETRI [Suspect]
     Active Substance: EPOPROSTENOL
     Dosage: 40.77 NG/KG, PER MIN
     Route: 042
  3. VELETRI [Suspect]
     Active Substance: EPOPROSTENOL
     Dosage: 30.91 NG/KG, PER MIN
     Route: 042
  4. VELETRI [Suspect]
     Active Substance: EPOPROSTENOL
     Dosage: 25.20 NG/KG, PER MIN
     Route: 042
  5. VELETRI [Suspect]
     Active Substance: EPOPROSTENOL
     Dosage: 39.87 NG/KG, PER MIN
     Route: 042
  6. VELETRI [Suspect]
     Active Substance: EPOPROSTENOL
     Dosage: 20.83 NG/KG, PER MIN
     Route: 042
  7. ELIQUIS [Concomitant]
     Active Substance: APIXABAN
  8. ADEMPAS [Concomitant]
     Active Substance: RIOCIGUAT
     Dosage: UNK
     Dates: end: 20200621
  9. VELETRI [Suspect]
     Active Substance: EPOPROSTENOL
     Dosage: 26.5 NG/KG, PER MIN
     Route: 042
  10. SILDENAFIL CITRATE. [Concomitant]
     Active Substance: SILDENAFIL CITRATE
  11. VELETRI [Suspect]
     Active Substance: EPOPROSTENOL
     Dosage: 31.81 NG/KG, PER MIN
     Route: 042
  12. VELETRI [Suspect]
     Active Substance: EPOPROSTENOL
     Dosage: 30.47 NG/KG, PER MIN
     Route: 042
  13. VELETRI [Suspect]
     Active Substance: EPOPROSTENOL
     Dosage: 25.2 NG/KG, PER MIN
     Route: 042
  14. DILTIAZEM. [Concomitant]
     Active Substance: DILTIAZEM
  15. VELETRI [Suspect]
     Active Substance: EPOPROSTENOL
     Indication: PULMONARY ARTERIAL HYPERTENSION
     Dosage: 40.32 NG/KG, PER MIN
     Route: 042
  16. BOSENTAN. [Suspect]
     Active Substance: BOSENTAN
     Indication: PULMONARY ARTERIAL HYPERTENSION
     Dosage: 62.5 MG, BID
     Route: 048
     Dates: start: 20200421
  17. TADALAFIL. [Concomitant]
     Active Substance: TADALAFIL

REACTIONS (43)
  - Cardiac ablation [Unknown]
  - Dyspnoea [Unknown]
  - Skin erosion [Unknown]
  - Skin burning sensation [Unknown]
  - Gout [Unknown]
  - Headache [Unknown]
  - Malaise [Unknown]
  - Dyspnoea exertional [Unknown]
  - Ingrown hair [Unknown]
  - Pain in extremity [Unknown]
  - Blood creatinine increased [Unknown]
  - Fluid retention [Not Recovered/Not Resolved]
  - Hypersomnia [Recovering/Resolving]
  - Rash erythematous [Not Recovered/Not Resolved]
  - Sinus disorder [Not Recovered/Not Resolved]
  - Eye movement disorder [Recovered/Resolved]
  - Unresponsive to stimuli [Recovered/Resolved]
  - Flushing [Not Recovered/Not Resolved]
  - Renal disorder [Unknown]
  - Ascites [Unknown]
  - Atrial fibrillation [Unknown]
  - Hypotension [Unknown]
  - Oedema [Unknown]
  - Feeling abnormal [Unknown]
  - Decreased appetite [Unknown]
  - Pain in jaw [Not Recovered/Not Resolved]
  - Abdominal discomfort [Unknown]
  - Blood potassium decreased [Unknown]
  - Heart rate increased [Unknown]
  - Catheter site pruritus [Unknown]
  - Supraventricular tachycardia [Unknown]
  - Blister [Unknown]
  - Sinusitis [Unknown]
  - Epistaxis [Unknown]
  - Weight increased [Unknown]
  - Ill-defined disorder [Unknown]
  - Catheter site pain [Unknown]
  - Device malfunction [Unknown]
  - Fatigue [Not Recovered/Not Resolved]
  - Erythema [Unknown]
  - Oedema peripheral [Unknown]
  - Catheter site papule [Unknown]
  - Condition aggravated [Unknown]

NARRATIVE: CASE EVENT DATE: 20200511
